FAERS Safety Report 12763659 (Version 2)
Quarter: 2016Q4

REPORT INFORMATION
  Report Type: Spontaneous
  Country: FR (occurrence: FR)
  Receive Date: 20160920
  Receipt Date: 20161130
  Transmission Date: 20170207
  Serious: Yes (Congenital Anomaly)
  Sender: FDA-Public Use
  Company Number: FR-ABBVIE-16P-056-1731794-00

PATIENT
  Sex: Male

DRUGS (1)
  1. DEPAKINE CHRONO [Suspect]
     Active Substance: VALPROATE SODIUM
     Indication: MATERNAL EXPOSURE TIMING UNSPECIFIED
     Route: 064

REACTIONS (13)
  - Phobia [Unknown]
  - Anxiety [Unknown]
  - Motor dysfunction [Unknown]
  - Autism spectrum disorder [Unknown]
  - Myopia [Unknown]
  - Foetal exposure during pregnancy [Unknown]
  - Tooth disorder [Unknown]
  - Memory impairment [Unknown]
  - Dysmorphism [Unknown]
  - Disturbance in attention [Unknown]
  - Mental disorder [Unknown]
  - Speech disorder [Unknown]
  - Abnormal behaviour [Unknown]

NARRATIVE: CASE EVENT DATE: 20000810
